FAERS Safety Report 13155510 (Version 1)
Quarter: 2017Q1

REPORT INFORMATION
  Report Type: Spontaneous
  Country: US (occurrence: US)
  Receive Date: 20170126
  Receipt Date: 20170126
  Transmission Date: 20170428
  Serious: Yes (Hospitalization)
  Sender: FDA-Public Use
  Company Number: US-UNITED THERAPEUTICS-UNT-2017-000754

PATIENT
  Age: 63 Year
  Sex: Female
  Weight: 65.76 kg

DRUGS (3)
  1. OPSUMIT [Concomitant]
     Active Substance: MACITENTAN
     Indication: PRODUCT USED FOR UNKNOWN INDICATION
  2. ADCIRCA [Concomitant]
     Active Substance: TADALAFIL
     Indication: PRODUCT USED FOR UNKNOWN INDICATION
  3. REMODULIN [Suspect]
     Active Substance: TREPROSTINIL
     Indication: PULMONARY HYPERTENSION
     Dosage: 0.069 ?G/KG, CONTINUING
     Route: 041
     Dates: start: 20160825

REACTIONS (5)
  - Nausea [Unknown]
  - Device leakage [Unknown]
  - Central venous catheterisation [Recovered/Resolved]
  - Device issue [Unknown]
  - Headache [Unknown]

NARRATIVE: CASE EVENT DATE: 201701
